FAERS Safety Report 10270388 (Version 3)
Quarter: 2014Q4

REPORT INFORMATION
  Report Type: Spontaneous
  Country: US (occurrence: None)
  Receive Date: 20140626
  Receipt Date: 20141024
  Transmission Date: 20150528
  Serious: Yes (Other)
  Sender: FDA-Public Use
  Company Number: AEGR000415

PATIENT
  Age: 71 Year
  Sex: Female
  Weight: 75.7 kg

DRUGS (17)
  1. KLOR-CON (POTASSIUM CHLORIDE) [Concomitant]
  2. LOVAZA (OMEGA-3-ACID ETHYL ESTER) [Concomitant]
  3. PRILOSEC (OMEPRAZOLE) [Concomitant]
     Active Substance: OMEPRAZOLE MAGNESIUM
  4. SAVELLA [Concomitant]
     Active Substance: MILNACIPRAN HYDROCHLORIDE
  5. MIRALAX (ACROGOL) [Concomitant]
  6. METFORMIN [Concomitant]
     Active Substance: METFORMIN HYDROCHLORIDE
  7. FISH OIL (FISH OIL) [Concomitant]
     Active Substance: FISH OIL
  8. PAXIL [Concomitant]
     Active Substance: PAROXETINE HYDROCHLORIDE
  9. CARAFATE [Concomitant]
     Active Substance: SUCRALFATE
  10. WARFARIN SODIUM (WARFARIN SODIUM) [Concomitant]
     Active Substance: WARFARIN SODIUM
  11. VITAMIN E [Concomitant]
     Active Substance: .ALPHA.-TOCOPHEROL
  12. OTHER THERAPEUTIC PRODUCTS ONGOING [Concomitant]
  13. JUXTAPID [Suspect]
     Active Substance: LOMITAPIDE MESYLATE
     Indication: TYPE IIA HYPERLIPIDAEMIA
     Dosage: HS
     Route: 048
     Dates: start: 201403, end: 20140602
  14. JANUVIA [Concomitant]
     Active Substance: SITAGLIPTIN PHOSPHATE
  15. ZANTAC [Concomitant]
     Active Substance: RANITIDINE HYDROCHLORIDE
  16. ISTALOL (TIMOLOL MALEATE) [Concomitant]
  17. ROPINIROLE (ROPINIROLE) [Concomitant]
     Active Substance: ROPINIROLE

REACTIONS (11)
  - Autoimmune disorder [None]
  - Faeces discoloured [None]
  - Abdominal distension [None]
  - Myositis [None]
  - Decreased appetite [None]
  - Fibromyalgia [None]
  - Nausea [None]
  - Inappropriate schedule of drug administration [None]
  - Diarrhoea [None]
  - Hepatitis [None]
  - Abdominal pain upper [None]

NARRATIVE: CASE EVENT DATE: 201403
